FAERS Safety Report 4846358-0 (Version None)
Quarter: 2005Q4

REPORT INFORMATION
  Report Type: 
  Country: None (occurrence: None)
  Receive Date: 20051206
  Receipt Date: 20051109
  Transmission Date: 20060501
  Serious: Yes (Hospitalization, Other)
  Sender: FDA-Public Use
  Company Number: JP-BRISTOL-MYERS SQUIBB COMPANY-13178793

PATIENT
  Age: 84 Year
  Sex: Male

DRUGS (5)
  1. GATIFLOXACIN [Suspect]
     Indication: PYOTHORAX
     Route: 048
     Dates: start: 20051030, end: 20051031
  2. CIBENOL [Suspect]
     Indication: ATRIAL FIBRILLATION
     Route: 048
     Dates: start: 20051026, end: 20051102
  3. MEROPEN [Concomitant]
     Dosage: DOSE: 1.5 G 17-OCT-2005 TO 24-OCT-2005; 1.0 G 25-OCT-2005 TO 29-OCT-2005.
     Route: 041
     Dates: start: 20051017, end: 20051029
  4. VERAPAMIL [Concomitant]
     Route: 048
     Dates: start: 20051026, end: 20051102
  5. LANIRAPID [Concomitant]
     Route: 048
     Dates: start: 20051026, end: 20051102

REACTIONS (2)
  - HYPOGLYCAEMIA [None]
  - HYPOGLYCAEMIC COMA [None]
